FAERS Safety Report 16535874 (Version 1)
Quarter: 2019Q3

REPORT INFORMATION
  Report Type: Spontaneous
  Country: CA (occurrence: CA)
  Receive Date: 20190705
  Receipt Date: 20190705
  Transmission Date: 20191004
  Serious: Yes (Other)
  Sender: FDA-Public Use
  Company Number: CA-BAXTER-2019BAX012727

PATIENT
  Age: 10 Year
  Sex: Male

DRUGS (32)
  1. PROCYTOX (CYCLOPHOSPHAMIDE) 2000MG/VIAL [Suspect]
     Active Substance: CYCLOPHOSPHAMIDE
     Indication: METASTASES TO LYMPH NODES
  2. RITUXIMAB. [Suspect]
     Active Substance: RITUXIMAB
     Indication: METASTASES TO LIVER
  3. DOXORUBICIN [Suspect]
     Active Substance: DOXORUBICIN
     Indication: BURKITT^S LYMPHOMA STAGE III
  4. LEUCOVORIN. [Concomitant]
     Active Substance: LEUCOVORIN
     Indication: PRODUCT USED FOR UNKNOWN INDICATION
     Dosage: AT 48 AND 60 HOURS
     Route: 048
  5. LEUCOVORIN. [Concomitant]
     Active Substance: LEUCOVORIN
     Dosage: (I.V./P.O) Q6H; START AT HOURS 24, CONTINUE UNTIL MTX LEVEL LESS THAN 0.1 UMOL/L UNDER R-CYM REGIMEN
     Route: 065
  6. PROCYTOX (CYCLOPHOSPHAMIDE) 2000MG/VIAL [Suspect]
     Active Substance: CYCLOPHOSPHAMIDE
     Indication: BURKITT^S LYMPHOMA STAGE III
     Dosage: ON DAY 1 DURING PRE-PHASE UNDER COP REDUCTION.
     Route: 042
  7. VINCRISTINE [Suspect]
     Active Substance: VINCRISTINE
     Indication: METASTASES TO LYMPH NODES
     Dosage: 2 MG/M2 (MAX 2MG)  PUSH ON DAY 1 UNDER R-COPADM
     Route: 042
  8. METHOTREXATE. [Suspect]
     Active Substance: METHOTREXATE
     Indication: METASTASES TO LYMPH NODES
     Dosage: 15 MG ON DAY 1 UNDER COP REDUCTION
     Route: 037
  9. CYTARABINE. [Suspect]
     Active Substance: CYTARABINE
     Indication: METASTASES TO LYMPH NODES
     Dosage: CONTINUOUS I.V. INFUSION OVER 24 HOURS, DAILY ? 5 DAYS ON DAYS 2, 3, 4, 5 AND 6 UNDER R-CYM REGIMEN
     Route: 041
  10. LEVOFLOXACIN. [Concomitant]
     Active Substance: LEVOFLOXACIN
     Indication: PROPHYLAXIS
     Route: 048
  11. FILGRASTIM [Concomitant]
     Active Substance: FILGRASTIM
     Indication: PRODUCT USED FOR UNKNOWN INDICATION
     Dosage: 5 UG/KG/DOSE (MAX 300 UG); START 24 HOURS AFTER THE LAST DOSE OF CHEMO UNDER R-COPADM REGIMEN
     Route: 058
  12. VINCRISTINE [Suspect]
     Active Substance: VINCRISTINE
     Indication: BURKITT^S LYMPHOMA STAGE III
     Dosage: 1 MG/M2 (MAX 2MG)  PUSH ON DAY 1 UNDER PRE-PHASE: COP REDUCTION.
     Route: 042
  13. HYDROCORTISONE. [Suspect]
     Active Substance: HYDROCORTISONE
     Indication: BURKITT^S LYMPHOMA STAGE III
     Dosage: ON DAYS 2 AND 6 UNDER R-COPADM REGIMEN
     Route: 037
  14. HYDROCORTISONE. [Suspect]
     Active Substance: HYDROCORTISONE
     Indication: METASTASES TO LIVER
     Dosage: HYDROCORTISONE IT: 15 MG (DAYS 2 AND 7) UNDER R-CYM REGIMEN
     Route: 037
  15. PREDNISONE. [Suspect]
     Active Substance: PREDNISONE
     Indication: METASTASES TO LIVER
  16. RITUXIMAB. [Suspect]
     Active Substance: RITUXIMAB
     Indication: BURKITT^S LYMPHOMA STAGE III
     Dosage: 375 MG/M2 ON DAY1 UNDER R-CYM REGIMEN
     Route: 042
  17. DOXORUBICIN [Suspect]
     Active Substance: DOXORUBICIN
     Indication: METASTASES TO LIVER
  18. CYTARABINE. [Suspect]
     Active Substance: CYTARABINE
     Indication: METASTASES TO LIVER
  19. METHOTREXATE. [Suspect]
     Active Substance: METHOTREXATE
     Indication: BURKITT^S LYMPHOMA STAGE III
     Dosage: HIGH DOSE OVER 3 HOURS ON DAY 1 UNDER R-COPADM REGIMEN
     Route: 042
  20. DOXORUBICIN [Suspect]
     Active Substance: DOXORUBICIN
     Indication: METASTASES TO LYMPH NODES
     Dosage: ON DAY 2 (AFTER THE FIRST DOSE OF CYCLOPHOSPHAMIDE) UNDER R-COPADM REGIMEN
     Route: 042
  21. CASPOFUNGIN [Concomitant]
     Active Substance: CASPOFUNGIN
     Indication: PROPHYLAXIS
     Route: 042
  22. PROCYTOX (CYCLOPHOSPHAMIDE) 2000MG/VIAL [Suspect]
     Active Substance: CYCLOPHOSPHAMIDE
     Indication: METASTASES TO LIVER
     Dosage: ON DAY 2, 3, 4 UNDER R-COPADM REGIMEN
     Route: 042
  23. VINCRISTINE [Suspect]
     Active Substance: VINCRISTINE
     Indication: METASTASES TO LIVER
  24. METHOTREXATE. [Suspect]
     Active Substance: METHOTREXATE
     Indication: METASTASES TO LIVER
     Dosage: ON DAYS 2 AND 6 UNDER R-COPADM REGIMEN
     Route: 037
  25. PREDNISONE. [Suspect]
     Active Substance: PREDNISONE
     Indication: BURKITT^S LYMPHOMA STAGE III
     Dosage: 30 MG/M2/DOSE 14 DOSES ON DAYS 1, 2, 3, 4, 5, 6, AND 7 UNDER COP REDUCTION.
     Route: 048
  26. CYTARABINE. [Suspect]
     Active Substance: CYTARABINE
     Indication: BURKITT^S LYMPHOMA STAGE III
     Dosage: DAY 7 UNDER R-CYM REGIMEN
     Route: 037
  27. METHOTREXATE. [Suspect]
     Active Substance: METHOTREXATE
     Dosage: HIGH DOSE METHOTREXATE 3000 MG/M2 I.V. OVER 3 HOURS ON DAY 1
     Route: 042
  28. HYDROCORTISONE. [Suspect]
     Active Substance: HYDROCORTISONE
     Indication: METASTASES TO LYMPH NODES
     Dosage: ON DAY 1 UNDER COP REDUCTION
     Route: 037
  29. METHOTREXATE. [Suspect]
     Active Substance: METHOTREXATE
     Dosage: DAY 2 UNDER R-CYM REGIMEN
     Route: 037
  30. PREDNISONE. [Suspect]
     Active Substance: PREDNISONE
     Indication: METASTASES TO LYMPH NODES
     Dosage: 30 MG/M2/DOSE 14 DOSES ON DAYS 1, 2, 3, 4 AND 5 UNDER R-COPADM REDUCTION AND THEN TAPER OVER 3 DAYS
     Route: 048
  31. RITUXIMAB. [Suspect]
     Active Substance: RITUXIMAB
     Indication: METASTASES TO LYMPH NODES
     Dosage: 375 MG/M2 ON DAY 1 (DAY 6 OF COP) AND DAY 1 (NO THERAPY ON DAY 0) UNDER R-COPADM REGIMEN
     Route: 042
  32. LEUCOVORIN. [Concomitant]
     Active Substance: LEUCOVORIN
     Dosage: (I.V./P.O) START AT HOURS 24 AND CONTINUE UNTIL MTX LEVEL LESS THAN OR EQUAL TO 0.1 UMOL/L
     Route: 065

REACTIONS (6)
  - Skin disorder [Unknown]
  - Clostridium difficile infection [Unknown]
  - Febrile neutropenia [Unknown]
  - Enteritis [Unknown]
  - Candida infection [Unknown]
  - Mucosal inflammation [Unknown]
